FAERS Safety Report 15959858 (Version 1)
Quarter: 2019Q1

REPORT INFORMATION
  Report Type: Spontaneous
  Country: US (occurrence: US)
  Receive Date: 20190214
  Receipt Date: 20190214
  Transmission Date: 20190417
  Serious: Yes (Other)
  Sender: FDA-Public Use
  Company Number: US-SA-2019SA040099

PATIENT

DRUGS (6)
  1. SULFASALAZINE. [Suspect]
     Active Substance: SULFASALAZINE
     Dosage: UNK
  2. ARAVA [Suspect]
     Active Substance: LEFLUNOMIDE
     Dosage: UNK
  3. REMICADE [Suspect]
     Active Substance: INFLIXIMAB
     Dosage: UNK
  4. ORENCIA [Suspect]
     Active Substance: ABATACEPT
  5. METHOTREXATE. [Suspect]
     Active Substance: METHOTREXATE
     Dosage: UNK
  6. ACTEMRA [Suspect]
     Active Substance: TOCILIZUMAB
     Dosage: UNK

REACTIONS (2)
  - Arthritis bacterial [Unknown]
  - Drug ineffective [Unknown]
